FAERS Safety Report 4892702-8 (Version None)
Quarter: 2006Q1

REPORT INFORMATION
  Report Type: 
  Country: None (occurrence: None)
  Receive Date: 20060125
  Receipt Date: 20060125
  Transmission Date: 20060701
  Serious: Yes (Hospitalization)
  Sender: FDA-Public Use
  Company Number: None

PATIENT
  Sex: Male

DRUGS (2)
  1. ENALAPRIL [Suspect]
     Indication: HYPERTENSION
     Dosage: 20MG, QD, ORAL
     Route: 048
  2. HYDROCHLOROTHIAZIDE [Suspect]
     Indication: HYPERTENSION
     Dosage: 25MG, BID, ORAL
     Route: 048

REACTIONS (4)
  - CONDITION AGGRAVATED [None]
  - HEADACHE [None]
  - HYPERTENSION [None]
  - TREATMENT NONCOMPLIANCE [None]
